FAERS Safety Report 13361658 (Version 3)
Quarter: 2019Q1

REPORT INFORMATION
  Report Type: Spontaneous
  Country: CA (occurrence: CA)
  Receive Date: 20170323
  Receipt Date: 20190214
  Transmission Date: 20190417
  Serious: Yes (Other)
  Sender: FDA-Public Use
  Company Number: CA-JNJFOC-20170316500

PATIENT
  Sex: Female

DRUGS (2)
  1. MOTRIN [Suspect]
     Active Substance: IBUPROFEN
     Indication: SYSTEMIC LUPUS ERYTHEMATOSUS
     Dosage: UP TO 1000MG, TWICE PER DAY, EVERY DAY WITHOUT A BREAK
     Route: 048
  2. MOTRIN [Suspect]
     Active Substance: IBUPROFEN
     Route: 048

REACTIONS (5)
  - Overdose [Unknown]
  - Gastrointestinal ulcer [Recovered/Resolved]
  - Drug dependence [Unknown]
  - Intentional product use issue [Unknown]
  - Product use in unapproved indication [Unknown]
